FAERS Safety Report 19584166 (Version 2)
Quarter: 2021Q3

REPORT INFORMATION
  Report Type: Report from Study
  Country: DE (occurrence: DE)
  Receive Date: 20210720
  Receipt Date: 20210824
  Transmission Date: 20211014
  Serious: Yes (Hospitalization, Other)
  Sender: FDA-Public Use
  Company Number: DE-TAKEDA-2021TUS043712

PATIENT
  Age: 49 Year
  Sex: Female

DRUGS (12)
  1. TEDUGLUTIDE [Suspect]
     Active Substance: TEDUGLUTIDE
     Indication: SHORT-BOWEL SYNDROME
     Dosage: 1.550 MILLIGRAM(0.0500 MG/KG), QD
     Route: 065
     Dates: start: 20171026, end: 20171129
  2. TEDUGLUTIDE [Suspect]
     Active Substance: TEDUGLUTIDE
     Dosage: 1.600 MILLIGRAM(0.0500 MG/KG), QD
     Route: 065
     Dates: start: 20171130
  3. KCL 7.45% BRAUN [Concomitant]
     Indication: NUTRITIONAL SUPPLEMENTATION
     Dosage: 20 MILLILITER, TID
     Route: 042
     Dates: start: 20200522
  4. TEDUGLUTIDE [Suspect]
     Active Substance: TEDUGLUTIDE
     Indication: SHORT-BOWEL SYNDROME
     Dosage: 1.550 MILLIGRAM(0.0500 MG/KG), QD
     Route: 065
     Dates: start: 20171026, end: 20171129
  5. TEDUGLUTIDE [Suspect]
     Active Substance: TEDUGLUTIDE
     Dosage: 1.600 MILLIGRAM(0.0500 MG/KG), QD
     Route: 065
     Dates: start: 20171130
  6. TEDUGLUTIDE [Suspect]
     Active Substance: TEDUGLUTIDE
     Dosage: 1.600 MILLIGRAM(0.0500 MG/KG), QD
     Route: 065
     Dates: start: 20171130
  7. JONOSTERIL [Concomitant]
     Indication: NUTRITIONAL SUPPLEMENTATION
     Dosage: 1 LITER, QD
     Route: 042
     Dates: start: 20200522
  8. TEDUGLUTIDE [Suspect]
     Active Substance: TEDUGLUTIDE
     Dosage: 1.600 MILLIGRAM(0.0500 MG/KG), QD
     Route: 065
     Dates: start: 20171130
  9. NUTRIFLEX LIPID PERI [Concomitant]
     Indication: NUTRITIONAL SUPPLEMENTATION
     Dosage: 1.86 LITER, QD
     Route: 042
     Dates: start: 20200522
  10. TEDUGLUTIDE [Suspect]
     Active Substance: TEDUGLUTIDE
     Indication: SHORT-BOWEL SYNDROME
     Dosage: 1.550 MILLIGRAM(0.0500 MG/KG), QD
     Route: 065
     Dates: start: 20171026, end: 20171129
  11. ADDAVEN [Concomitant]
     Active Substance: ELECTROLYTES NOS\MINERALS
     Indication: NUTRITIONAL SUPPLEMENTATION
     Dosage: 10 MILLILITER, QD
     Route: 042
     Dates: start: 20200522
  12. TEDUGLUTIDE [Suspect]
     Active Substance: TEDUGLUTIDE
     Indication: SHORT-BOWEL SYNDROME
     Dosage: 1.550 MILLIGRAM(0.0500 MG/KG), QD
     Route: 065
     Dates: start: 20171026, end: 20171129

REACTIONS (4)
  - Hypokalaemia [Recovered/Resolved]
  - Klebsiella sepsis [Recovered/Resolved]
  - Candida pneumonia [Recovered/Resolved]
  - Acute kidney injury [Recovered/Resolved]

NARRATIVE: CASE EVENT DATE: 20200512
